FAERS Safety Report 17041176 (Version 4)
Quarter: 2019Q4

REPORT INFORMATION
  Report Type: Spontaneous
  Country: JP (occurrence: JP)
  Receive Date: 20191118
  Receipt Date: 20191227
  Transmission Date: 20200122
  Serious: Yes (Hospitalization)
  Sender: FDA-Public Use
  Company Number: JP-ADVANZ PHARMA-201911001651

PATIENT

DRUGS (6)
  1. METHYCOBAL [Concomitant]
     Active Substance: METHYLCOBALAMIN
     Indication: PRODUCT USED FOR UNKNOWN INDICATION
     Dosage: UNK DRUG START DATE AND UNIT 824 DAYS
     Dates: start: 20170802
  2. CERCINE [Concomitant]
     Active Substance: DIAZEPAM
     Indication: PRODUCT USED FOR UNKNOWN INDICATION
     Dosage: UNK
     Dates: start: 20191114, end: 20191114
  3. EC DOPARL [Concomitant]
     Active Substance: BENSERAZIDE HYDROCHLORIDE\LEVODOPA
     Indication: PRODUCT USED FOR UNKNOWN INDICATION
     Dosage: UNK; DOSAGE AND FREQUENCY UNKNOWN DRUG START PERIOD AND UNIT 264 DAYS
     Dates: start: 20190213
  4. ZONISAMIDE. [Suspect]
     Active Substance: ZONISAMIDE
     Indication: DEMENTIA WITH LEWY BODIES
     Dosage: 25 MG, QD; ORODISPERSIBLE TABLET DRUG START PERIOD UNIT 12 DAYS
     Route: 048
     Dates: start: 20191023
  5. RIVASTACH [Concomitant]
     Active Substance: RIVASTIGMINE
     Indication: PRODUCT USED FOR UNKNOWN INDICATION
     Dosage: UNK DOSAGE AND FREQUENCY UNKNOWN DRUG START PERIOD AND UNIT 229 DAYS
     Dates: start: 20190320
  6. ZONISAMIDE. [Suspect]
     Active Substance: ZONISAMIDE
     Indication: PARKINSONISM
     Dosage: UNK DRUG START PERIOD UNIT 12 DAYS

REACTIONS (1)
  - Fall [Unknown]

NARRATIVE: CASE EVENT DATE: 20191103
